FAERS Safety Report 7647463 (Version 9)
Quarter: 2013Q2

REPORT INFORMATION
  Report Type: Spontaneous
  Country: CA (occurrence: CA)
  Receive Date: 20101029
  Receipt Date: 20130415
  Transmission Date: 20140414
  Serious: Yes (Hospitalization, Other)
  Sender: FDA-Public Use
  Company Number: PHHY2010CA70592

PATIENT
  Age: 80 Year
  Sex: Male

DRUGS (9)
  1. SANDOSTATIN LAR [Suspect]
     Indication: NEUROENDOCRINE TUMOUR
     Dosage: 30 MG, QMO
     Route: 030
     Dates: start: 20100902
  2. SANDOSTATIN LAR [Suspect]
     Dosage: 30 MG, EVERY 4 WEEKS
     Route: 030
     Dates: start: 20101018
  3. SANDOSTATIN LAR [Suspect]
     Dosage: 30 MG, QMO
     Route: 030
     Dates: end: 20120601
  4. SANDOSTATIN LAR [Suspect]
     Dosage: 30 MG, ONCE A MONTH
     Route: 030
  5. HYDROMORPH CONTIN [Concomitant]
  6. AVODART [Concomitant]
  7. LACTULOSE [Concomitant]
  8. COLACE [Concomitant]
  9. PANTOLOC [Concomitant]

REACTIONS (10)
  - Injection site haemorrhage [Recovered/Resolved]
  - Acute myocardial infarction [Recovered/Resolved with Sequelae]
  - Pain [Unknown]
  - Blood pressure systolic increased [Recovered/Resolved]
  - Heart rate irregular [Recovered/Resolved]
  - Malignant neoplasm progression [Unknown]
  - Needle issue [Unknown]
  - Feeling abnormal [Unknown]
  - Fatigue [Unknown]
  - Injection site pain [Recovered/Resolved]
